FAERS Safety Report 8258984-X (Version None)
Quarter: 2012Q2

REPORT INFORMATION
  Report Type: 
  Country: None (occurrence: None)
  Receive Date: 20120404
  Receipt Date: 20120327
  Transmission Date: 20120825
  Serious: Yes (Death, Life-Threatening)
  Sender: FDA-Public Use
  Company Number: FR-FRI-1000029530

PATIENT
  Sex: Female

DRUGS (23)
  1. ALDALIX [Concomitant]
  2. FLUTICASONE PROPIONATE/SALMETEROL [Concomitant]
  3. CITALOPRAM HYDROBROMIDE [Suspect]
     Indication: DEPRESSION
     Dosage: CITALOPRAM OVERDOSE: 60 MG DAILY
     Route: 048
     Dates: start: 20120119, end: 20120210
  4. MEGACE [Suspect]
     Indication: DECREASED APPETITE
     Dosage: 1 DF
     Route: 048
     Dates: start: 20120203, end: 20120205
  5. ALUMINUM HYDROXIDE AND MAGNESIUM TRISILICATE [Concomitant]
  6. DECAN [Concomitant]
  7. MEGACE [Suspect]
     Dosage: 3 DF
     Route: 048
     Dates: start: 20120206, end: 20120209
  8. ASPIRIN [Concomitant]
  9. CERNEVIT-12 [Concomitant]
  10. MAGNESIUM SULFATE [Concomitant]
  11. BRICANYL [Concomitant]
  12. PENTASA [Concomitant]
     Route: 054
  13. OLIMEL [Concomitant]
  14. VITAMIN B1 AND B6 [Concomitant]
  15. SINGULAIR [Concomitant]
  16. CALCIUM GLUCONATE [Concomitant]
  17. ASCORBIC ACID [Concomitant]
  18. ATROVENT [Concomitant]
  19. IMODIUM [Concomitant]
  20. NEXIUM [Concomitant]
     Dates: start: 20111101
  21. LOVENOX [Concomitant]
  22. PHOCYTAN [Concomitant]
  23. PREDNISOLONE [Concomitant]

REACTIONS (2)
  - OVERDOSE [None]
  - THROMBOCYTOPENIA [None]
